FAERS Safety Report 10282789 (Version 1)
Quarter: 2014Q3

REPORT INFORMATION
  Report Type: Spontaneous
  Country: CA (occurrence: CA)
  Receive Date: 20140708
  Receipt Date: 20140708
  Transmission Date: 20150326
  Serious: Yes (Death)
  Sender: FDA-Public Use
  Company Number: CA-ROCHE-1430802

PATIENT
  Sex: Male

DRUGS (6)
  1. XOLAIR [Suspect]
     Active Substance: OMALIZUMAB
     Indication: ASTHMA
     Route: 058
     Dates: start: 20130129
  2. PREDNISONE. [Concomitant]
     Active Substance: PREDNISONE
  3. OXEZE [Concomitant]
  4. XOLAIR [Suspect]
     Active Substance: OMALIZUMAB
     Route: 058
     Dates: start: 20131023
  5. VENTOLIN [Concomitant]
     Active Substance: ALBUTEROL SULFATE
  6. RAMIPRIL. [Concomitant]
     Active Substance: RAMIPRIL

REACTIONS (1)
  - Complications of transplant surgery [Fatal]
